FAERS Safety Report 18215832 (Version 2)
Quarter: 2020Q3

REPORT INFORMATION
  Report Type: Report from Study
  Country: DE (occurrence: DE)
  Receive Date: 20200831
  Receipt Date: 20200906
  Transmission Date: 20201103
  Serious: Yes (Other)
  Sender: FDA-Public Use
  Company Number: DE-ROCHE-2665579

PATIENT
  Age: 53 Year
  Sex: Female
  Weight: 104 kg

DRUGS (8)
  1. PANTOPRAZOLE [Concomitant]
     Active Substance: PANTOPRAZOLE
     Route: 048
  2. RAMIPRIL. [Concomitant]
     Active Substance: RAMIPRIL
     Indication: HYPERTENSION
     Route: 048
  3. BLINDED ATEZOLIZUMAB [Suspect]
     Active Substance: ATEZOLIZUMAB
     Indication: OVARIAN CANCER
     Dosage: ON 11/AUG/2020, SHE RECEIVED MOST RECENT DOSE OF ATEZOLIZUMAB ON DAY 1 AND DAY 15 OF 28 DAYS CYCLE.
     Route: 042
     Dates: start: 20200630
  4. BEVACIZUMAB. [Suspect]
     Active Substance: BEVACIZUMAB
     Indication: OVARIAN CANCER
     Dosage: ON 11/AUG/2020, SHE RECEIVED MOST RECENT DOSE OF BEVACIZUMAB 10 MG/KG ON DAY 1 AND DAY 15 OF 28 DAYS
     Route: 042
     Dates: start: 20200630
  5. EQUINOVO [Concomitant]
     Route: 048
  6. L?THYROXIN [Concomitant]
     Active Substance: LEVOTHYROXINE SODIUM
     Indication: HYPOTHYROIDISM
     Route: 048
  7. CAELYX [Suspect]
     Active Substance: DOXORUBICIN HYDROCHLORIDE
     Indication: OVARIAN CANCER
     Dosage: ON 28/JUL/2020, SHE RECEIVED MOST RECENT DOSE OF PEGYLATED LIPOSOMAL DOXORUBICIN  40 MG/M2 1 TIME IN
     Route: 042
     Dates: start: 20200630
  8. RESOLOR [Concomitant]
     Active Substance: PRUCALOPRIDE SUCCINATE
     Indication: CONSTIPATION
     Route: 048

REACTIONS (1)
  - Skin exfoliation [Not Recovered/Not Resolved]

NARRATIVE: CASE EVENT DATE: 20200819
